FAERS Safety Report 5282973-0 (Version None)
Quarter: 2007Q2

REPORT INFORMATION
  Report Type: 
  Country: None (occurrence: None)
  Receive Date: 20070402
  Receipt Date: 20070319
  Transmission Date: 20071010
  Serious: Yes (Other)
  Sender: FDA-Public Use
  Company Number: PHEH2006US14604

PATIENT
  Age: 66 Year
  Sex: Female

DRUGS (8)
  1. EXJADE [Suspect]
     Indication: IRON OVERLOAD
     Dosage: 1500 MG, QD
     Route: 048
     Dates: start: 20061025, end: 20061126
  2. EXJADE [Suspect]
     Dosage: 1500 MG, QD
     Route: 048
  3. LYRICA [Concomitant]
  4. MARINOL [Concomitant]
  5. CHEMOTHERAPEUTICS,OTHER [Concomitant]
  6. BLOOD AND RELATED PRODUCTS [Concomitant]
  7. METHYLPREDNISOLONE 16MG TAB [Concomitant]
     Dates: end: 20070130
  8. CYTARABINE [Concomitant]
     Dates: end: 20070130

REACTIONS (4)
  - DIARRHOEA [None]
  - URINARY TRACT INFECTION [None]
  - VISUAL DISTURBANCE [None]
  - VITREOUS DETACHMENT [None]
